FAERS Safety Report 10530759 (Version 1)
Quarter: 2014Q4

REPORT INFORMATION
  Report Type: Spontaneous
  Country: US (occurrence: None)
  Receive Date: 20141020
  Receipt Date: 20141020
  Transmission Date: 20150528
  Serious: Yes (Other)
  Sender: FDA-Public Use
  Company Number: None

PATIENT
  Age: 38 Year
  Sex: Male
  Weight: 88.45 kg

DRUGS (3)
  1. CLONAZEPAM. [Suspect]
     Active Substance: CLONAZEPAM
     Indication: GENERALISED ANXIETY DISORDER
     Dates: start: 20080312, end: 20140708
  2. DIAZEPAM. [Suspect]
     Active Substance: DIAZEPAM
  3. XANAX [Suspect]
     Active Substance: ALPRAZOLAM

REACTIONS (3)
  - Emotional disorder [None]
  - Drug withdrawal syndrome [None]
  - Drug dependence [None]
